FAERS Safety Report 17464655 (Version 2)
Quarter: 2020Q2

REPORT INFORMATION
  Report Type: Spontaneous
  Country: ES (occurrence: ES)
  Receive Date: 20200226
  Receipt Date: 20200629
  Transmission Date: 20200713
  Serious: Yes (Hospitalization)
  Sender: FDA-Public Use
  Company Number: NVSC2020ES047260

PATIENT
  Age: 64 Year
  Sex: Male

DRUGS (4)
  1. DICLOFENAC [Suspect]
     Active Substance: DICLOFENAC
     Indication: PRODUCT USED FOR UNKNOWN INDICATION
     Dosage: UNK
     Route: 030
     Dates: start: 20180131, end: 20180131
  2. DICLOFENACO LLORENS [Suspect]
     Active Substance: DICLOFENAC SODIUM
     Indication: EAR PAIN
     Dosage: 75 MG, ONCE/SINGLE (75 MG SOLUCION INYECTABLE EFG, 100 AMPOLLAS DE 3 ML)
     Route: 030
     Dates: start: 20180131, end: 20180131
  3. METAMIZOL NORMON [Suspect]
     Active Substance: METAMIZOLE SODIUM
     Indication: EAR PAIN
     Dosage: 1 DF, ONCE/SINGLE (2 G/5 ML SOLUCION INYECTABLE EFG, 100 AMPOLLAS DE 5 ML)
     Route: 030
     Dates: start: 20180131, end: 20180131
  4. NOLOTIL (METAMIZOLE MAGNESIUM) [Suspect]
     Active Substance: METAMIZOLE MAGNESIUM
     Indication: PRODUCT USED FOR UNKNOWN INDICATION
     Dosage: UNK
     Route: 030
     Dates: start: 20180131, end: 20180131

REACTIONS (3)
  - Necrotising fasciitis [Unknown]
  - Necrotising fasciitis [Recovering/Resolving]
  - Injection site reaction [Recovering/Resolving]

NARRATIVE: CASE EVENT DATE: 20180131
